FAERS Safety Report 4571813-0 (Version None)
Quarter: 2005Q1

REPORT INFORMATION
  Report Type: 
  Country: None (occurrence: None)
  Receive Date: 20050207
  Receipt Date: 20041105
  Transmission Date: 20050727
  Serious: Yes (Hospitalization)
  Sender: FDA-Public Use
  Company Number: US-MERCK-0411USA01120

PATIENT
  Age: 53 Year
  Sex: Female
  Weight: 67 kg

DRUGS (12)
  1. PRAVACHOL [Concomitant]
     Indication: BLOOD CHOLESTEROL INCREASED
     Route: 065
     Dates: start: 19940101, end: 20040101
  2. VITAMINS (UNSPECIFIED) [Concomitant]
     Route: 048
  3. HYDROCHLOROTHIAZIDE [Concomitant]
     Route: 048
     Dates: start: 20020301
  4. LIPITOR [Concomitant]
     Route: 048
     Dates: start: 20030101, end: 20040101
  5. TYLENOL [Concomitant]
     Route: 048
     Dates: start: 20010101
  6. VIOXX [Suspect]
     Indication: RHEUMATOID ARTHRITIS
     Route: 048
     Dates: start: 20000401, end: 20010601
  7. PLAQUENIL [Concomitant]
     Indication: RHEUMATOID ARTHRITIS
     Route: 065
  8. METHOTREXATE [Concomitant]
     Indication: RHEUMATOID ARTHRITIS
     Route: 048
     Dates: start: 19970101
  9. FOLIC ACID [Concomitant]
     Indication: RHEUMATOID ARTHRITIS
     Route: 048
  10. FOLIC ACID [Concomitant]
     Route: 048
  11. CALCIUM (UNSPECIFIED) [Concomitant]
     Route: 065
  12. PREMPHASE 14/14 [Concomitant]
     Indication: HORMONE REPLACEMENT THERAPY
     Route: 048
     Dates: start: 19990224, end: 20010507

REACTIONS (17)
  - ABDOMINAL DISTENSION [None]
  - AREFLEXIA [None]
  - BURSITIS [None]
  - CEREBROVASCULAR ACCIDENT [None]
  - CONFUSIONAL STATE [None]
  - DIVERTICULUM INTESTINAL [None]
  - DYSPEPSIA [None]
  - ERUCTATION [None]
  - INCREASED TENDENCY TO BRUISE [None]
  - LOCALISED INFECTION [None]
  - MITRAL VALVE INCOMPETENCE [None]
  - PARONYCHIA [None]
  - PLEURAL FIBROSIS [None]
  - POLYNEUROPATHY [None]
  - RHEUMATOID ARTHRITIS [None]
  - TRICUSPID VALVE INCOMPETENCE [None]
  - VENTRICULAR DYSFUNCTION [None]
